FAERS Safety Report 10228827 (Version 1)
Quarter: 2014Q2

REPORT INFORMATION
  Report Type: Spontaneous
  Country: US (occurrence: US)
  Receive Date: 20140610
  Receipt Date: 20140610
  Transmission Date: 20141212
  Serious: Yes (Hospitalization, Other)
  Sender: FDA-Public Use
  Company Number: US-TEVA-486247USA

PATIENT
  Age: 27 Year
  Sex: Female

DRUGS (5)
  1. WARFARIN [Suspect]
     Indication: INTENTIONAL OVERDOSE
     Dosage: 60 TABLETS
     Route: 048
  2. ACETAMINOPHEN W/OXYCODONE [Suspect]
     Indication: INTENTIONAL OVERDOSE
     Route: 048
  3. NAPROXEN [Suspect]
     Indication: INTENTIONAL OVERDOSE
     Route: 048
  4. NORTRIPTYLINE [Suspect]
     Indication: INTENTIONAL OVERDOSE
     Route: 048
  5. IBUPROFEN [Suspect]
     Indication: INTENTIONAL OVERDOSE
     Route: 048

REACTIONS (3)
  - International normalised ratio increased [Recovered/Resolved]
  - Intentional overdose [Recovered/Resolved]
  - Suicide attempt [Recovered/Resolved]
